FAERS Safety Report 5313079-X (Version None)
Quarter: 2007Q2

REPORT INFORMATION
  Report Type: 
  Country: None (occurrence: None)
  Receive Date: 20070430
  Receipt Date: 20070418
  Transmission Date: 20071010
  Serious: Yes (Hospitalization)
  Sender: FDA-Public Use
  Company Number: DE-PFIZER INC-2007031020

PATIENT
  Age: 58 Year
  Sex: Male
  Weight: 102 kg

DRUGS (3)
  1. GENOTROPIN [Suspect]
     Indication: HYPOPITUITARISM
     Dosage: DAILY DOSE:.2MG-FREQ:DAILY
     Route: 058
     Dates: start: 20010925, end: 20060611
  2. HYDROCORTISONE [Concomitant]
     Dosage: DAILY DOSE:25MG-FREQ:DAILY
     Dates: start: 20010131, end: 20010302
  3. LORZAAR [Concomitant]
     Dosage: DAILY DOSE:50MG-FREQ:DAILY
     Dates: start: 20030526

REACTIONS (1)
  - PITUITARY TUMOUR RECURRENT [None]
